FAERS Safety Report 25261942 (Version 2)
Quarter: 2025Q2

REPORT INFORMATION
  Report Type: Report from Study
  Country: ES (occurrence: ES)
  Receive Date: 20250502
  Receipt Date: 20250529
  Transmission Date: 20250717
  Serious: Yes (Hospitalization)
  Sender: RANBAXY
  Company Number: ES-SUN PHARMACEUTICAL INDUSTRIES LTD-2025RR-505951

PATIENT
  Age: 20 Year
  Sex: Female
  Weight: 95.5 kg

DRUGS (57)
  1. TEMOZOLOMIDE [Suspect]
     Active Substance: TEMOZOLOMIDE
     Indication: Perivascular epithelioid cell tumour
     Route: 048
     Dates: start: 20230905, end: 20240229
  2. TEMOZOLOMIDE [Suspect]
     Active Substance: TEMOZOLOMIDE
     Route: 048
     Dates: start: 20240301
  3. TEMOZOLOMIDE [Suspect]
     Active Substance: TEMOZOLOMIDE
     Route: 048
     Dates: start: 20240703, end: 20250323
  4. ABEMACICLIB [Suspect]
     Active Substance: ABEMACICLIB
     Indication: Perivascular epithelioid cell tumour
     Dosage: 150 MILLIGRAM, BID
     Route: 048
     Dates: start: 20230905, end: 20230914
  5. ABEMACICLIB [Suspect]
     Active Substance: ABEMACICLIB
     Dosage: 150 MILLIGRAM, BID
     Route: 048
     Dates: start: 20230915, end: 20231001
  6. ABEMACICLIB [Suspect]
     Active Substance: ABEMACICLIB
     Dosage: 150 MILLIGRAM, BID
     Route: 048
     Dates: start: 20231002, end: 20231005
  7. ABEMACICLIB [Suspect]
     Active Substance: ABEMACICLIB
     Dosage: 150 MILLIGRAM, BID
     Route: 048
     Dates: start: 20231005, end: 20231006
  8. ABEMACICLIB [Suspect]
     Active Substance: ABEMACICLIB
     Dosage: 150 MILLIGRAM, BID
     Route: 048
     Dates: start: 20231007, end: 20231017
  9. ABEMACICLIB [Suspect]
     Active Substance: ABEMACICLIB
     Dosage: 150 MILLIGRAM, BID
     Route: 048
     Dates: start: 20231113, end: 20231129
  10. ABEMACICLIB [Suspect]
     Active Substance: ABEMACICLIB
     Dosage: 150 MILLIGRAM, BID
     Route: 048
     Dates: start: 20231130, end: 20231204
  11. ABEMACICLIB [Suspect]
     Active Substance: ABEMACICLIB
     Dosage: 150 MILLIGRAM, BID
     Route: 048
     Dates: start: 20231204, end: 20231216
  12. ABEMACICLIB [Suspect]
     Active Substance: ABEMACICLIB
     Dosage: 150 MILLIGRAM, BID
     Route: 048
     Dates: start: 20231218, end: 20240104
  13. ABEMACICLIB [Suspect]
     Active Substance: ABEMACICLIB
     Dosage: 150 MILLIGRAM, BID
     Route: 048
     Dates: start: 20240105, end: 20240106
  14. ABEMACICLIB [Suspect]
     Active Substance: ABEMACICLIB
     Dosage: 150 MILLIGRAM, BID
     Route: 048
     Dates: start: 20240107, end: 20240109
  15. ABEMACICLIB [Suspect]
     Active Substance: ABEMACICLIB
     Dosage: 150 MILLIGRAM, BID
     Route: 048
     Dates: start: 20240110, end: 20240123
  16. ABEMACICLIB [Suspect]
     Active Substance: ABEMACICLIB
     Dosage: 150 MILLIGRAM, BID
     Route: 048
     Dates: start: 20240124, end: 20240128
  17. ABEMACICLIB [Suspect]
     Active Substance: ABEMACICLIB
     Dosage: 150 MILLIGRAM, BID
     Route: 048
     Dates: start: 20240129, end: 20240210
  18. ABEMACICLIB [Suspect]
     Active Substance: ABEMACICLIB
     Dosage: 150 MILLIGRAM, BID
     Route: 048
     Dates: start: 20240129, end: 20240210
  19. ABEMACICLIB [Suspect]
     Active Substance: ABEMACICLIB
     Dosage: 150 MILLIGRAM, BID
     Route: 048
     Dates: start: 20240210, end: 20240213
  20. ABEMACICLIB [Suspect]
     Active Substance: ABEMACICLIB
     Dosage: 150 MILLIGRAM, BID
     Route: 048
     Dates: start: 20240213, end: 20240214
  21. ABEMACICLIB [Suspect]
     Active Substance: ABEMACICLIB
     Dosage: 150 MILLIGRAM, BID
     Route: 048
     Dates: start: 20240214, end: 20240216
  22. ABEMACICLIB [Suspect]
     Active Substance: ABEMACICLIB
     Dosage: 150 MILLIGRAM, BID
     Route: 048
     Dates: start: 20240216, end: 20240229
  23. ABEMACICLIB [Suspect]
     Active Substance: ABEMACICLIB
     Dosage: 100 MILLIGRAM, BID
     Route: 048
     Dates: start: 20240301, end: 20240327
  24. ABEMACICLIB [Suspect]
     Active Substance: ABEMACICLIB
     Dosage: 100 MILLIGRAM, BID
     Route: 048
     Dates: start: 20240327, end: 20240408
  25. ABEMACICLIB [Suspect]
     Active Substance: ABEMACICLIB
     Dosage: 100 MILLIGRAM, BID
     Route: 048
     Dates: start: 20240408
  26. ABEMACICLIB [Suspect]
     Active Substance: ABEMACICLIB
     Dosage: 150 MILLIGRAM, BID
     Route: 048
     Dates: start: 20230905, end: 20230914
  27. ABEMACICLIB [Suspect]
     Active Substance: ABEMACICLIB
     Dosage: 150 MILLIGRAM, BID
     Route: 048
     Dates: start: 20230915, end: 20231001
  28. ABEMACICLIB [Suspect]
     Active Substance: ABEMACICLIB
     Dosage: 150 MILLIGRAM, BID
     Route: 048
     Dates: start: 20231002, end: 20231005
  29. ABEMACICLIB [Suspect]
     Active Substance: ABEMACICLIB
     Dosage: 150 MILLIGRAM, BID
     Route: 048
     Dates: start: 20231005, end: 20231006
  30. ABEMACICLIB [Suspect]
     Active Substance: ABEMACICLIB
     Dosage: 150 MILLIGRAM, BID
     Route: 048
     Dates: start: 20231007, end: 20231017
  31. ABEMACICLIB [Suspect]
     Active Substance: ABEMACICLIB
     Dosage: 150 MILLIGRAM, BID
     Route: 048
     Dates: start: 20231113, end: 20231129
  32. ABEMACICLIB [Suspect]
     Active Substance: ABEMACICLIB
     Dosage: 150 MILLIGRAM, BID
     Route: 048
     Dates: start: 20231130, end: 20231204
  33. ABEMACICLIB [Suspect]
     Active Substance: ABEMACICLIB
     Dosage: 150 MILLIGRAM, BID
     Route: 048
     Dates: start: 20231204, end: 20231216
  34. ABEMACICLIB [Suspect]
     Active Substance: ABEMACICLIB
     Dosage: 150 MILLIGRAM, BID
     Route: 048
     Dates: start: 20231218, end: 20240104
  35. ABEMACICLIB [Suspect]
     Active Substance: ABEMACICLIB
     Dosage: 150 MILLIGRAM, BID
     Route: 048
     Dates: start: 20240105, end: 20240106
  36. ABEMACICLIB [Suspect]
     Active Substance: ABEMACICLIB
     Dosage: 150 MILLIGRAM, BID
     Route: 048
     Dates: start: 20240107, end: 20240109
  37. ABEMACICLIB [Suspect]
     Active Substance: ABEMACICLIB
     Dosage: 150 MILLIGRAM, BID
     Route: 048
     Dates: start: 20240110, end: 20240123
  38. ABEMACICLIB [Suspect]
     Active Substance: ABEMACICLIB
     Dosage: 150 MILLIGRAM, BID
     Route: 048
     Dates: start: 20240124, end: 20240128
  39. ABEMACICLIB [Suspect]
     Active Substance: ABEMACICLIB
     Dosage: 150 MILLIGRAM, BID
     Route: 048
     Dates: start: 20240129, end: 20240210
  40. ABEMACICLIB [Suspect]
     Active Substance: ABEMACICLIB
     Dosage: 150 MILLIGRAM, BID
     Route: 048
     Dates: start: 20240129, end: 20240210
  41. ABEMACICLIB [Suspect]
     Active Substance: ABEMACICLIB
     Dosage: 150 MILLIGRAM, BID
     Route: 048
     Dates: start: 20240210, end: 20240213
  42. ABEMACICLIB [Suspect]
     Active Substance: ABEMACICLIB
     Dosage: 150 MILLIGRAM, BID
     Route: 048
     Dates: start: 20240213, end: 20240214
  43. ABEMACICLIB [Suspect]
     Active Substance: ABEMACICLIB
     Dosage: 150 MILLIGRAM, BID
     Route: 048
     Dates: start: 20240214, end: 20240216
  44. ABEMACICLIB [Suspect]
     Active Substance: ABEMACICLIB
     Dosage: 150 MILLIGRAM, BID
     Route: 048
     Dates: start: 20240216, end: 20240229
  45. ABEMACICLIB [Suspect]
     Active Substance: ABEMACICLIB
     Dosage: UNK, BID
     Route: 048
     Dates: start: 20240703
  46. ONDANSETRON [Concomitant]
     Active Substance: ONDANSETRON
     Indication: Prophylaxis
     Route: 065
     Dates: start: 202212
  47. ONDANSETRON [Concomitant]
     Active Substance: ONDANSETRON
     Indication: Vomiting
  48. METOCLOPRAMIDE [Concomitant]
     Active Substance: METOCLOPRAMIDE
     Indication: Prophylaxis
     Route: 065
     Dates: start: 20231119
  49. METOCLOPRAMIDE [Concomitant]
     Active Substance: METOCLOPRAMIDE
     Indication: Vomiting
  50. ACETAMINOPHEN [Concomitant]
     Active Substance: ACETAMINOPHEN
     Indication: Musculoskeletal chest pain
     Route: 065
     Dates: start: 20250325
  51. ACETAMINOPHEN [Concomitant]
     Active Substance: ACETAMINOPHEN
     Indication: Flank pain
     Route: 042
     Dates: end: 20250404
  52. TRAMADOL [Concomitant]
     Active Substance: TRAMADOL
     Indication: Musculoskeletal chest pain
     Route: 065
     Dates: start: 20250325
  53. TRAMADOL [Concomitant]
     Active Substance: TRAMADOL
     Indication: Flank pain
     Route: 042
     Dates: end: 20250404
  54. IBUPROFEN [Concomitant]
     Active Substance: IBUPROFEN
     Indication: Flank pain
     Route: 065
     Dates: start: 20250325
  55. METAMIZOLE [Concomitant]
     Active Substance: METAMIZOLE
     Indication: Musculoskeletal chest pain
     Route: 048
  56. METAMIZOLE [Concomitant]
     Active Substance: METAMIZOLE
     Route: 042
     Dates: end: 20250404
  57. OMEPRAZOLE [Concomitant]
     Active Substance: OMEPRAZOLE
     Indication: Chest pain
     Route: 065

REACTIONS (1)
  - Musculoskeletal chest pain [Recovered/Resolved]

NARRATIVE: CASE EVENT DATE: 20250402
